FAERS Safety Report 9639690 (Version 1)
Quarter: 2013Q4

REPORT INFORMATION
  Report Type: Spontaneous
  Country: FR (occurrence: FR)
  Receive Date: 20131023
  Receipt Date: 20131023
  Transmission Date: 20140711
  Serious: Yes (Hospitalization)
  Sender: FDA-Public Use
  Company Number: FR-MERCK-1310FRA006938

PATIENT
  Age: 3 Year
  Sex: Male

DRUGS (1)
  1. AERIUS [Suspect]
     Dosage: 100 ML, ONCE
     Route: 048
     Dates: start: 20130422, end: 20130422

REACTIONS (2)
  - Poisoning [Recovered/Resolved]
  - No adverse event [Unknown]
